FAERS Safety Report 23686377 (Version 1)
Quarter: 2024Q1

REPORT INFORMATION
  Report Type: Spontaneous
  Country: US (occurrence: US)
  Receive Date: 20240329
  Receipt Date: 20240329
  Transmission Date: 20240410
  Serious: No
  Sender: FDA-Public Use
  Company Number: US-JNJFOC-20240374017

PATIENT
  Age: 67 Year
  Sex: Female
  Weight: 61.2 kg

DRUGS (34)
  1. OPSUMIT [Suspect]
     Active Substance: MACITENTAN
     Indication: Product used for unknown indication
     Route: 048
  2. OXYGEN [Suspect]
     Active Substance: OXYGEN
     Indication: Product used for unknown indication
     Route: 065
  3. REMODULIN [Suspect]
     Active Substance: TREPROSTINIL
     Indication: Pulmonary arterial hypertension
     Dosage: PHARMACY FILL WITH # 2 3 ML/CASSETTE; PUMP RATE 32 MCL/HOUR), CONTINUING, SUBCUTANEOUS USE
     Route: 058
  4. REMODULIN [Suspect]
     Active Substance: TREPROSTINIL
     Dosage: PHARMACY FILL WITH # 2 3 ML/CASSETTE; PUMP RATE 34 MCL/HOUR), CONTINUING, SUBCUTANEOUS USE
     Route: 058
  5. REMODULIN [Suspect]
     Active Substance: TREPROSTINIL
     Dosage: CONTINUING, SUBCUTANEOUS USE
     Route: 058
  6. REMODULIN [Suspect]
     Active Substance: TREPROSTINIL
     Dosage: CONTINUING, SUBCUTANEOUS USE
     Route: 058
  7. REMODULIN [Suspect]
     Active Substance: TREPROSTINIL
     Dosage: PHARMACY FILL WITH # 2 3 ML/CASSETTE; PUMP RATE 38 MCL/HOUR), CONTINUING, SUBCUTANEOUS USE
     Route: 058
  8. REMODULIN [Suspect]
     Active Substance: TREPROSTINIL
     Dosage: CONTINUING, SUBCUTANEOUS USE
     Route: 058
     Dates: start: 20230922
  9. ADEMPAS [Concomitant]
     Active Substance: RIOCIGUAT
  10. IBUPROFEN [Concomitant]
     Active Substance: IBUPROFEN
  11. NIFEDIPINE [Concomitant]
     Active Substance: NIFEDIPINE
  12. VENLAFAXINE HCL [Concomitant]
     Active Substance: VENLAFAXINE HYDROCHLORIDE
  13. MYCOPHENOLATE MOFETIL [Concomitant]
     Active Substance: MYCOPHENOLATE MOFETIL
  14. SODIUM CHLORIDE [Concomitant]
     Active Substance: SODIUM CHLORIDE
  15. MUPIROCIN [Concomitant]
     Active Substance: MUPIROCIN
  16. VITAMIN D3 [Concomitant]
     Active Substance: CHOLECALCIFEROL
  17. KETAMINE HYDROCHLORIDE [Concomitant]
     Active Substance: KETAMINE HYDROCHLORIDE
  18. LECITHIN [Concomitant]
     Active Substance: LECITHIN
  19. SILDENAFIL [Concomitant]
     Active Substance: SILDENAFIL
  20. TRAMADOL HCL [Concomitant]
     Active Substance: TRAMADOL HYDROCHLORIDE
  21. LEVOTHYROXINE SODIUM [Concomitant]
     Active Substance: LEVOTHYROXINE SODIUM
  22. CLONIDINE [Concomitant]
     Active Substance: CLONIDINE
  23. KETOPROFEN [Concomitant]
     Active Substance: KETOPROFEN
  24. ASPIRIN [Concomitant]
     Active Substance: ASPIRIN
  25. LIDOCAINE HYDROCHLORIDE [Concomitant]
     Active Substance: LIDOCAINE HYDROCHLORIDE
  26. MODERNA COVID-19 VACCINE [Concomitant]
     Active Substance: ELASOMERAN
  27. AMITRIPTYLINE HYDROCHLORIDE [Concomitant]
     Active Substance: AMITRIPTYLINE HYDROCHLORIDE
  28. GABAPENTIN [Concomitant]
     Active Substance: GABAPENTIN
  29. POLOXAMER [Concomitant]
     Active Substance: POLOXAMER
  30. PREDNISONE [Concomitant]
     Active Substance: PREDNISONE
  31. POTASSIUM CHLORIDE [Concomitant]
     Active Substance: POTASSIUM CHLORIDE
  32. HYDRALAZINE HCL [Concomitant]
     Active Substance: HYDRALAZINE HYDROCHLORIDE
  33. DEXILANT [Concomitant]
     Active Substance: DEXLANSOPRAZOLE
  34. TADALAFIL [Concomitant]
     Active Substance: TADALAFIL

REACTIONS (12)
  - Malaise [Not Recovered/Not Resolved]
  - Speech disorder [Unknown]
  - Headache [Unknown]
  - Dyspnoea [Not Recovered/Not Resolved]
  - Seasonal allergy [Unknown]
  - Infusion site erythema [Unknown]
  - Infusion site induration [Unknown]
  - Dizziness postural [Unknown]
  - Device issue [Unknown]
  - Drug ineffective [Unknown]
  - Product dose omission issue [Unknown]
  - Device wireless communication issue [Unknown]

NARRATIVE: CASE EVENT DATE: 20240104
